FAERS Safety Report 15813757 (Version 1)
Quarter: 2019Q1

REPORT INFORMATION
  Report Type: Spontaneous
  Country: US (occurrence: US)
  Receive Date: 20190111
  Receipt Date: 20190111
  Transmission Date: 20190417
  Serious: Yes (Other)
  Sender: FDA-Public Use
  Company Number: None

PATIENT
  Age: 34 Year
  Sex: Male
  Weight: 74.25 kg

DRUGS (8)
  1. ALBUTEROL. [Concomitant]
     Active Substance: ALBUTEROL
  2. NORTRIPTYLINE [Concomitant]
     Active Substance: NORTRIPTYLINE
  3. VITAMIN D [Concomitant]
     Active Substance: CHOLECALCIFEROL
  4. BUSPIRONE [Concomitant]
     Active Substance: BUSPIRONE HYDROCHLORIDE
  5. MIRTAZAPINE. [Concomitant]
     Active Substance: MIRTAZAPINE
  6. PROAIR HFA [Suspect]
     Active Substance: ALBUTEROL SULFATE
     Indication: ASTHMA
     Dosage: ?          QUANTITY:1 PUFF(S);?
     Route: 055
  7. LORAZEPAM. [Concomitant]
     Active Substance: LORAZEPAM
  8. MONTELUKAST [Concomitant]
     Active Substance: MONTELUKAST SODIUM

REACTIONS (1)
  - Device malfunction [None]

NARRATIVE: CASE EVENT DATE: 20190110
